FAERS Safety Report 25045509 (Version 2)
Quarter: 2025Q2

REPORT INFORMATION
  Report Type: Spontaneous
  Country: US (occurrence: US)
  Receive Date: 20250306
  Receipt Date: 20250606
  Transmission Date: 20250716
  Serious: Yes (Hospitalization, Other)
  Sender: UCB
  Company Number: US-UCBSA-2025012605

PATIENT
  Sex: Female

DRUGS (1)
  1. BIMZELX [Interacting]
     Active Substance: BIMEKIZUMAB-BKZX
     Indication: Psoriasis
     Dosage: 320 MILLIGRAM, EV 2 WEEKS(QOW)
     Route: 058
     Dates: start: 202501, end: 20250216

REACTIONS (5)
  - Nasal operation [Unknown]
  - Epistaxis [Recovering/Resolving]
  - Coagulopathy [Unknown]
  - Drug interaction [Unknown]
  - Prothrombin level abnormal [Unknown]

NARRATIVE: CASE EVENT DATE: 20250101
